FAERS Safety Report 8484711-7 (Version None)
Quarter: 2012Q3

REPORT INFORMATION
  Report Type: 
  Country: None (occurrence: None)
  Receive Date: 20120703
  Receipt Date: 20120529
  Transmission Date: 20120928
  Serious: No
  Sender: FDA-Public Use
  Company Number: US-TEVA-340589USA

PATIENT
  Sex: Female

DRUGS (11)
  1. BUPROPION HCL [Concomitant]
     Indication: DEPRESSION
     Dates: start: 20120101
  2. INSULIN HUMAN [Concomitant]
     Indication: DIABETES MELLITUS
     Route: 058
  3. NUVIGIL [Suspect]
     Indication: NARCOLEPSY
  4. INSULIN GLARGINE [Concomitant]
     Indication: DIABETES MELLITUS
     Route: 058
  5. DOXAZOSIN MESYLATE [Concomitant]
     Indication: HYPERTENSION
     Route: 048
  6. VIIBRYD [Concomitant]
     Indication: DEPRESSION
     Route: 048
     Dates: start: 20120101
  7. NUVIGIL [Suspect]
     Indication: SLEEP APNOEA SYNDROME
     Route: 048
     Dates: start: 20120520, end: 20120523
  8. LISINOPRIL [Concomitant]
     Indication: HYPERTENSION
     Dosage: 20 MILLIGRAM;
     Route: 048
  9. ROSUVASTATIN [Concomitant]
     Indication: BLOOD CHOLESTEROL
     Route: 048
  10. PANTOPRAZOLE [Concomitant]
     Indication: ULCER
     Route: 048
  11. CLONAZEPAM [Concomitant]
     Indication: PANIC ATTACK
     Route: 048
     Dates: start: 20090101

REACTIONS (2)
  - INSOMNIA [None]
  - ABNORMAL DREAMS [None]
